FAERS Safety Report 15401607 (Version 1)
Quarter: 2018Q3

REPORT INFORMATION
  Report Type: Spontaneous
  Country: US (occurrence: US)
  Receive Date: 20180914
  Receipt Date: 20180914
  Transmission Date: 20181010
  Serious: Yes (Other)
  Sender: FDA-Public Use
  Company Number: None

PATIENT
  Age: 26 Year
  Sex: Male

DRUGS (1)
  1. BUPRENORPHINE AND NALOXONE [Suspect]
     Active Substance: BUPRENORPHINE\NALOXONE
     Indication: DRUG DEPENDENCE
     Route: 048
     Dates: start: 20180814, end: 20180914

REACTIONS (6)
  - Chills [None]
  - Pain [None]
  - Insomnia [None]
  - Malaise [None]
  - Intentional product use issue [None]
  - Therapy change [None]

NARRATIVE: CASE EVENT DATE: 20180814
